FAERS Safety Report 7834503-4 (Version None)
Quarter: 2011Q4

REPORT INFORMATION
  Report Type: 
  Country: None (occurrence: None)
  Receive Date: 20111024
  Receipt Date: 20111014
  Transmission Date: 20120403
  Serious: Yes (Other)
  Sender: FDA-Public Use
  Company Number: US-ALLERGAN-1112712US

PATIENT
  Age: 51 Year
  Sex: Female
  Weight: 47.619 kg

DRUGS (3)
  1. ERRIN [Concomitant]
     Indication: CONTRACEPTION
  2. ALLEGRA [Concomitant]
     Indication: SEASONAL ALLERGY
  3. BOTOX COSMETIC [Suspect]
     Indication: SKIN WRINKLING
     Dosage: 24 UNITS, SINGLE
     Route: 030
     Dates: start: 20101207, end: 20101207

REACTIONS (31)
  - MUSCULOSKELETAL PAIN [None]
  - ABDOMINAL PAIN UPPER [None]
  - ANXIETY [None]
  - ARTHRALGIA [None]
  - TENDONITIS [None]
  - INFLUENZA [None]
  - FATIGUE [None]
  - NECK PAIN [None]
  - MUSCULOSKELETAL CHEST PAIN [None]
  - GINGIVAL PAIN [None]
  - PRURITUS GENERALISED [None]
  - DYSPHAGIA [None]
  - PAIN IN JAW [None]
  - MUSCLE INJURY [None]
  - BACK PAIN [None]
  - PAIN IN EXTREMITY [None]
  - MYALGIA [None]
  - MUSCLE SPASMS [None]
  - HEADACHE [None]
  - URTICARIA [None]
  - DIARRHOEA [None]
  - DYSPNOEA [None]
  - UPPER-AIRWAY COUGH SYNDROME [None]
  - THROAT TIGHTNESS [None]
  - HYPERSENSITIVITY [None]
  - MUSCLE TWITCHING [None]
  - TOOTH DISORDER [None]
  - VISION BLURRED [None]
  - NEURALGIA [None]
  - FEELING ABNORMAL [None]
  - JOINT DISLOCATION [None]
